FAERS Safety Report 10331305 (Version 1)
Quarter: 2014Q3

REPORT INFORMATION
  Report Type: Spontaneous
  Country: US (occurrence: US)
  Receive Date: 20140722
  Receipt Date: 20140722
  Transmission Date: 20150326
  Serious: No
  Sender: FDA-Public Use
  Company Number: US-TEVA-427823USA

PATIENT
  Sex: Female

DRUGS (1)
  1. FLUCONAZOLE. [Suspect]
     Active Substance: FLUCONAZOLE
     Indication: FUNGAL INFECTION
     Dosage: JULY 16,17 AND 24TH
     Dates: start: 20130713, end: 20130724

REACTIONS (6)
  - Skin disorder [Unknown]
  - Pruritus [Unknown]
  - Skin sensitisation [Unknown]
  - Gait disturbance [Unknown]
  - Burning sensation [Unknown]
  - Flushing [Not Recovered/Not Resolved]
